FAERS Safety Report 25024075 (Version 1)
Quarter: 2025Q1

REPORT INFORMATION
  Report Type: Spontaneous
  Country: US (occurrence: US)
  Receive Date: 20250228
  Receipt Date: 20250228
  Transmission Date: 20250409
  Serious: No
  Sender: MYLAN
  Company Number: US-MYLANLABS-2025M1015586

PATIENT
  Sex: Female

DRUGS (4)
  1. CELEBREX [Interacting]
     Active Substance: CELECOXIB
     Indication: Product used for unknown indication
     Dosage: 200 MILLIGRAM, BID (1 CAPSULE BY MOUTH TWICE DAILY)
     Dates: end: 20241204
  2. CELEBREX [Interacting]
     Active Substance: CELECOXIB
     Dosage: 200 MILLIGRAM, BID (1 CAPSULE BY MOUTH TWICE DAILY)
     Route: 048
     Dates: end: 20241204
  3. CELEBREX [Interacting]
     Active Substance: CELECOXIB
     Dosage: 200 MILLIGRAM, BID (1 CAPSULE BY MOUTH TWICE DAILY)
     Route: 048
     Dates: end: 20241204
  4. CELEBREX [Interacting]
     Active Substance: CELECOXIB
     Dosage: 200 MILLIGRAM, BID (1 CAPSULE BY MOUTH TWICE DAILY)
     Dates: end: 20241204

REACTIONS (1)
  - Drug interaction [Unknown]
